FAERS Safety Report 6641575-1 (Version None)
Quarter: 2010Q1

REPORT INFORMATION
  Report Type: 
  Country: None (occurrence: None)
  Receive Date: 20100317
  Receipt Date: 20100317
  Transmission Date: 20100710
  Serious: Yes (Other)
  Sender: FDA-Public Use
  Company Number: None

PATIENT
  Age: 89 Year
  Sex: Male
  Weight: 68.9 kg

DRUGS (12)
  1. INSULIN, GLARGINE [Suspect]
     Indication: TYPE 1 DIABETES MELLITUS
     Dosage: 25 UNITS QHS SQ
     Route: 058
     Dates: start: 20100123, end: 20100125
  2. HEPARIN [Concomitant]
  3. APAP TAB [Concomitant]
  4. ASPIRIN [Concomitant]
  5. ATORVASTATIN CALCIUM [Concomitant]
  6. ATENOLOL [Concomitant]
  7. CLOPIDOGREL [Concomitant]
  8. FUROSEMIDE [Concomitant]
  9. ASPART [Concomitant]
  10. GLARGINE [Concomitant]
  11. TAZOBACTAM [Concomitant]
  12. VANCOMYCIN [Concomitant]

REACTIONS (1)
  - BLOOD GLUCOSE DECREASED [None]
